FAERS Safety Report 5302688-X (Version None)
Quarter: 2007Q2

REPORT INFORMATION
  Report Type: 
  Country: None (occurrence: None)
  Receive Date: 20070419
  Receipt Date: 20070409
  Transmission Date: 20071010
  Serious: Yes (Other)
  Sender: FDA-Public Use
  Company Number: BR-PFIZER INC-2007018342

PATIENT
  Sex: Female

DRUGS (4)
  1. LIPITOR [Suspect]
     Indication: DYSLIPIDAEMIA
     Route: 048
  2. FOSAMAX [Concomitant]
     Dosage: TEXT:70 MG-FREQ:WEEKLY
     Route: 048
  3. EVISTA [Concomitant]
     Dosage: DAILY DOSE:60MG-FREQ:DAILY
     Route: 048
  4. EUTHYROX [Concomitant]
     Dosage: DAILY DOSE:75MG-FREQ:DAILY
     Route: 048

REACTIONS (1)
  - EYE DISORDER [None]
